FAERS Safety Report 8021410-X (Version None)
Quarter: 2011Q4

REPORT INFORMATION
  Report Type: 
  Country: None (occurrence: None)
  Receive Date: 20111230
  Receipt Date: 20111230
  Transmission Date: 20120403
  Serious: Yes (Hospitalization)
  Sender: FDA-Public Use
  Company Number: None

PATIENT
  Age: 83 Year
  Sex: Male
  Weight: 69.5 kg

DRUGS (1)
  1. CLINDAMYCIN [Suspect]
     Indication: INFECTION PROPHYLAXIS
     Dosage: 150 MG QID  PO
     Route: 048
     Dates: start: 20111103, end: 20111105

REACTIONS (3)
  - NAUSEA [None]
  - VOMITING [None]
  - UPPER GASTROINTESTINAL HAEMORRHAGE [None]
